FAERS Safety Report 7112532-6 (Version None)
Quarter: 2010Q4

REPORT INFORMATION
  Report Type: 
  Country: None (occurrence: None)
  Receive Date: 20101119
  Receipt Date: 20101029
  Transmission Date: 20110411
  Serious: Yes (Other)
  Sender: FDA-Public Use
  Company Number: MY-BAYER-201044728GPV

PATIENT
  Sex: Female

DRUGS (2)
  1. YAZ [Suspect]
     Route: 048
  2. YASMIN [Suspect]

REACTIONS (1)
  - CHOLESTASIS [None]
